FAERS Safety Report 10659718 (Version 2)
Quarter: 2014Q4

REPORT INFORMATION
  Report Type: Spontaneous
  Country: US (occurrence: US)
  Receive Date: 20141217
  Receipt Date: 20141217
  Transmission Date: 20150529
  Serious: Yes (Other)
  Sender: FDA-Public Use
  Company Number: US-CELGENEUS-163-20785-14020812

PATIENT
  Age: 37 Year
  Sex: Female
  Weight: 57.2 kg

DRUGS (7)
  1. PROTONIX [Concomitant]
     Active Substance: PANTOPRAZOLE SODIUM
     Indication: GASTROOESOPHAGEAL REFLUX DISEASE
     Dosage: 80 MILLIGRAM
     Route: 048
     Dates: start: 20130729
  2. THALOMID [Suspect]
     Active Substance: THALIDOMIDE
     Indication: TYPE 2 LEPRA REACTION
     Dosage: 200 MILLIGRAM
     Route: 048
     Dates: start: 20130626
  3. THALOMID [Suspect]
     Active Substance: THALIDOMIDE
     Indication: LEPROSY
  4. CLOFAZIMINE [Concomitant]
     Active Substance: CLOFAZIMINE
     Indication: LEPROSY
     Dosage: 50 MILLIGRAM
     Route: 048
     Dates: start: 20120716
  5. DAPSONE. [Concomitant]
     Active Substance: DAPSONE
     Indication: LEPROSY
     Dosage: 50 MILLIGRAM
     Route: 048
     Dates: start: 20120716
  6. PARAGARD T380A [Concomitant]
     Active Substance: COPPER
     Indication: PRODUCT USED FOR UNKNOWN INDICATION
     Route: 048
     Dates: start: 20130326
  7. BIAXIN [Concomitant]
     Active Substance: CLARITHROMYCIN
     Indication: LEPROSY
     Dosage: 500 MILLIGRAM
     Route: 048
     Dates: start: 20120716

REACTIONS (1)
  - Amenorrhoea [Unknown]

NARRATIVE: CASE EVENT DATE: 20131102
